FAERS Safety Report 17068130 (Version 1)
Quarter: 2019Q4

REPORT INFORMATION
  Report Type: Spontaneous
  Country: US (occurrence: US)
  Receive Date: 20191122
  Receipt Date: 20191122
  Transmission Date: 20200122
  Serious: Yes (Other)
  Sender: FDA-Public Use
  Company Number: US-LANNETT COMPANY, INC.-US-2019LAN001061

PATIENT
  Sex: Female

DRUGS (2)
  1. DIETHYLPROPION HYDROCHLORIDE (75MG) [Suspect]
     Active Substance: DIETHYLPROPION HYDROCHLORIDE
     Indication: BLOOD PRESSURE MEASUREMENT
     Dosage: 75 MG, UNK
     Dates: start: 20190418, end: 20190418
  2. DIETHYLPROPION /00052702/ [Suspect]
     Active Substance: DIETHYLPROPION HYDROCHLORIDE
     Indication: BLOOD PRESSURE MEASUREMENT
     Dosage: 75 MG, UNK, TEVA BRAND
     Route: 065
     Dates: start: 1979, end: 20190418

REACTIONS (3)
  - Hypertension [Recovered/Resolved]
  - Heart rate increased [Recovered/Resolved]
  - Palpitations [Recovered/Resolved]

NARRATIVE: CASE EVENT DATE: 20190418
